FAERS Safety Report 14234205 (Version 1)
Quarter: 2017Q4

REPORT INFORMATION
  Report Type: Report from Study
  Country: AU (occurrence: AU)
  Receive Date: 20171129
  Receipt Date: 20171129
  Transmission Date: 20180321
  Serious: Yes (Hospitalization)
  Sender: FDA-Public Use
  Company Number: PHHO2016AU003788

PATIENT
  Age: 52 Year
  Sex: Female
  Weight: 66.2 kg

DRUGS (10)
  1. EFEXOR [Concomitant]
     Active Substance: VENLAFAXINE HYDROCHLORIDE
     Indication: ANXIETY
     Dosage: 150 MG, UNK
     Route: 065
     Dates: start: 2007
  2. ENDEP [Concomitant]
     Active Substance: AMITRIPTYLINE HYDROCHLORIDE
     Indication: RESTLESS LEGS SYNDROME
     Dosage: 75 MG, UNK
     Route: 065
     Dates: start: 1985
  3. MOBIC [Concomitant]
     Active Substance: MELOXICAM
     Indication: BONE PAIN
     Dosage: 15 MG, UNK
     Route: 065
     Dates: start: 20160311
  4. PANADEINE [Concomitant]
     Active Substance: ACETAMINOPHEN\CODEINE PHOSPHATE
     Indication: PRODUCT USED FOR UNKNOWN INDICATION
     Dosage: UNK
     Route: 065
  5. NUROFEN [Concomitant]
     Active Substance: IBUPROFEN
     Indication: PRODUCT USED FOR UNKNOWN INDICATION
     Route: 065
  6. FULVESTRANT. [Suspect]
     Active Substance: FULVESTRANT
     Indication: BREAST CANCER METASTATIC
     Dosage: 500 MG, UNK
     Route: 048
     Dates: start: 20160310
  7. BLINDED NO TREATMENT RECEIVED [Suspect]
     Active Substance: INVESTIGATIONAL PRODUCT
     Indication: BREAST CANCER METASTATIC
     Dosage: 600 MG, UNK
     Route: 048
     Dates: start: 20160310, end: 20160310
  8. BLINDED LEE011 [Suspect]
     Active Substance: RIBOCICLIB
     Indication: BREAST CANCER METASTATIC
     Dosage: 600 MG, UNK
     Route: 048
     Dates: start: 20160310, end: 20160310
  9. BLINDED PLACEBO [Suspect]
     Active Substance: INVESTIGATIONAL PRODUCT
     Indication: BREAST CANCER METASTATIC
     Dosage: 600 MG, UNK
     Route: 048
     Dates: start: 20160310, end: 20160310
  10. EFEXOR [Concomitant]
     Active Substance: VENLAFAXINE HYDROCHLORIDE
     Indication: DEPRESSION

REACTIONS (3)
  - Anxiety [Recovered/Resolved]
  - Asthenia [Recovered/Resolved]
  - Nausea [Recovered/Resolved]

NARRATIVE: CASE EVENT DATE: 20160310
